FAERS Safety Report 6754344-9 (Version None)
Quarter: 2010Q2

REPORT INFORMATION
  Report Type: 
  Country: None (occurrence: None)
  Receive Date: 20100603
  Receipt Date: 20100527
  Transmission Date: 20101027
  Serious: Yes (Hospitalization, Other)
  Sender: FDA-Public Use
  Company Number: US-BRISTOL-MYERS SQUIBB COMPANY-15124068

PATIENT
  Age: 5 Year
  Sex: Female
  Weight: 15 kg

DRUGS (7)
  1. SPRYCEL [Suspect]
     Indication: B PRECURSOR TYPE ACUTE LEUKAEMIA
     Dosage: DASATINIB: 6OMG/M2 PC QD ON DAYS 1-14 AND 29-42 DRUG INTERRUPTED IN18MAR10
     Route: 048
     Dates: start: 20100308, end: 20100318
  2. VINCRISTINE SULFATE [Suspect]
     Indication: B PRECURSOR TYPE ACUTE LEUKAEMIA
     Dosage: VINCRISTINE: 1 .5MG/M2 (MAX 2MG) IV ON DAYS 1, 8 AND 15
     Route: 042
     Dates: start: 20100308, end: 20100315
  3. DAUNORUBICIN HCL [Suspect]
     Indication: B PRECURSOR TYPE ACUTE LEUKAEMIA
     Dosage: DANORUBICIN: 25MG1M2 IV OVER 15 MM ON DAYS 15 AND 22
     Route: 042
     Dates: start: 20100308, end: 20100315
  4. PREDNISONE [Suspect]
     Indication: B PRECURSOR TYPE ACUTE LEUKAEMIA
     Dosage: PREDNISONE: 3OMG/M2 P0 BID ON DAYS 15-28 DRUG INTERRUPTED IN19MAR10
     Route: 048
     Dates: start: 20100308, end: 20100319
  5. ONCASPAR [Suspect]
  6. AMLODIPINE [Concomitant]
  7. CHLOROTHIAZIDE [Concomitant]

REACTIONS (5)
  - CAECITIS [None]
  - DECREASED APPETITE [None]
  - ILEUS [None]
  - NEUTROPHIL COUNT DECREASED [None]
  - WEIGHT DECREASED [None]
